FAERS Safety Report 18654928 (Version 1)
Quarter: 2020Q4

REPORT INFORMATION
  Report Type: Spontaneous
  Country: US (occurrence: US)
  Receive Date: 20201223
  Receipt Date: 20201223
  Transmission Date: 20210114
  Serious: Yes (Other)
  Sender: FDA-Public Use
  Company Number: None

PATIENT
  Age: 45 Year
  Sex: Female
  Weight: 97.5 kg

DRUGS (1)
  1. FERRLECIT [Suspect]
     Active Substance: SODIUM FERRIC GLUCONATE COMPLEX
     Indication: IRON DEFICIENCY ANAEMIA
     Dosage: ?          OTHER FREQUENCY:ONCE;?
     Route: 042
     Dates: start: 20201211, end: 20201211

REACTIONS (6)
  - Skin tightness [None]
  - Burning sensation [None]
  - Hyperhidrosis [None]
  - Nasopharyngitis [None]
  - Syncope [None]
  - Peripheral swelling [None]

NARRATIVE: CASE EVENT DATE: 20201211
